FAERS Safety Report 5722057-8 (Version None)
Quarter: 2008Q2

REPORT INFORMATION
  Report Type: 
  Country: None (occurrence: None)
  Receive Date: 20080429
  Receipt Date: 20080417
  Transmission Date: 20081010
  Serious: Yes (Other)
  Sender: FDA-Public Use
  Company Number: CH-PFIZER INC-2008033928

PATIENT
  Sex: Male
  Weight: 47 kg

DRUGS (9)
  1. SUTENT [Suspect]
     Indication: GASTROINTESTINAL STROMAL TUMOUR
     Route: 048
     Dates: start: 20071101, end: 20080214
  2. DEXAMETHASONE [Concomitant]
     Route: 048
  3. NEXIUM [Concomitant]
     Route: 048
  4. SANDOSTATIN [Concomitant]
  5. VITARUBIN [Concomitant]
     Route: 058
     Dates: start: 20080122, end: 20080122
  6. SERETIDE [Concomitant]
     Route: 055
  7. SPIRIVA [Concomitant]
     Route: 055
  8. LORAZEPAM [Concomitant]
     Route: 048
  9. ALDACTONE [Concomitant]
     Route: 048
     Dates: start: 20080128, end: 20080130

REACTIONS (1)
  - ELECTROLYTE IMBALANCE [None]
